FAERS Safety Report 7041376-9 (Version None)
Quarter: 2010Q4

REPORT INFORMATION
  Report Type: 
  Country: None (occurrence: None)
  Receive Date: 20101013
  Receipt Date: 20101008
  Transmission Date: 20110411
  Serious: Yes (Hospitalization, Other)
  Sender: FDA-Public Use
  Company Number: US-AMGEN-KDL441277

PATIENT
  Sex: Female
  Weight: 125.8 kg

DRUGS (8)
  1. ENBREL [Suspect]
     Indication: RHEUMATOID ARTHRITIS
     Route: 058
     Dates: start: 20060529
  2. HYDROCODONE [Concomitant]
     Route: 048
     Dates: start: 20050901
  3. LYRICA [Concomitant]
     Route: 048
     Dates: start: 20070101
  4. REGLAN [Concomitant]
     Route: 048
     Dates: start: 20070101
  5. COZAAR [Concomitant]
     Route: 048
  6. VYTORIN [Concomitant]
     Route: 048
  7. ACTOS [Concomitant]
     Route: 048
  8. ACIPHEX [Concomitant]
     Route: 048

REACTIONS (9)
  - ABASIA [None]
  - ARTHRALGIA [None]
  - ASTHMA [None]
  - BACK PAIN [None]
  - BLOOD GLUCOSE DECREASED [None]
  - FALL [None]
  - HIP ARTHROPLASTY [None]
  - KNEE ARTHROPLASTY [None]
  - RENAL IMPAIRMENT [None]
